FAERS Safety Report 7447472-6 (Version None)
Quarter: 2011Q2

REPORT INFORMATION
  Report Type: 
  Country: None (occurrence: None)
  Receive Date: 20110419
  Receipt Date: 20110404
  Transmission Date: 20111010
  Serious: Yes (Hospitalization)
  Sender: FDA-Public Use
  Company Number: 2011SP009098

PATIENT
  Sex: Female

DRUGS (4)
  1. ZOLPIDEM [Suspect]
     Indication: PRODUCT USED FOR UNKNOWN INDICATION
     Dosage: 30 DF ONCE, PO
     Route: 048
     Dates: start: 20100923, end: 20100923
  2. KCL TAB [Suspect]
     Indication: PRODUCT USED FOR UNKNOWN INDICATION
     Dosage: 40 DF, ONCE, PO
     Route: 048
     Dates: start: 20100923, end: 20100923
  3. MICARDIS [Suspect]
     Indication: PRODUCT USED FOR UNKNOWN INDICATION
     Dosage: 7 DF, ONCE, PO
     Route: 048
     Dates: start: 20100923, end: 20100923
  4. MIRTAZAPINE [Suspect]
     Indication: PRODUCT USED FOR UNKNOWN INDICATION
     Dosage: 15 DF, ONCE. PO
     Route: 048
     Dates: start: 20100923, end: 20100923

REACTIONS (4)
  - COMA [None]
  - BLOOD PRESSURE SYSTOLIC INCREASED [None]
  - MULTIPLE DRUG OVERDOSE [None]
  - HEART RATE INCREASED [None]
